FAERS Safety Report 25432680 (Version 2)
Quarter: 2025Q2

REPORT INFORMATION
  Report Type: Spontaneous
  Country: US (occurrence: US)
  Receive Date: 20250613
  Receipt Date: 20250620
  Transmission Date: 20250717
  Serious: Yes (Death, Other)
  Sender: RANBAXY
  Company Number: US-MIMS-SUN-2025-USA-53535

PATIENT
  Age: 74 Year
  Sex: Male

DRUGS (1)
  1. ODOMZO [Suspect]
     Active Substance: SONIDEGIB
     Indication: Basal cell carcinoma
     Dosage: 200 MILLIGRAM, QD
     Route: 048
     Dates: start: 20250415

REACTIONS (1)
  - Death [Fatal]

NARRATIVE: CASE EVENT DATE: 20250530
